FAERS Safety Report 25462199 (Version 3)
Quarter: 2025Q3

REPORT INFORMATION
  Report Type: Spontaneous
  Country: HN (occurrence: HN)
  Receive Date: 20250620
  Receipt Date: 20250710
  Transmission Date: 20251021
  Serious: No
  Sender: PFIZER
  Company Number: HN-PFIZER INC-PV202500069094

PATIENT
  Age: 11 Year
  Sex: Male

DRUGS (1)
  1. GENOTROPIN [Suspect]
     Active Substance: SOMATROPIN
     Dosage: 1 MG, 1X/DAY

REACTIONS (1)
  - Device information output issue [Unknown]
